FAERS Safety Report 13794672 (Version 1)
Quarter: 2017Q3

REPORT INFORMATION
  Report Type: Spontaneous
  Country: US (occurrence: US)
  Receive Date: 20170726
  Receipt Date: 20170726
  Transmission Date: 20171127
  Serious: No
  Sender: FDA-Public Use
  Company Number: US-IPSEN BIOPHARMACEUTICALS, INC.-2017-03808

PATIENT
  Sex: Male

DRUGS (9)
  1. MULTI VITAMIN [Concomitant]
     Active Substance: VITAMINS
  2. LISINOPRIL. [Concomitant]
     Active Substance: LISINOPRIL
  3. DICLOFENAC [Concomitant]
     Active Substance: DICLOFENAC
  4. SOMATULINE DEPOT [Suspect]
     Active Substance: LANREOTIDE ACETATE
     Indication: ACROMEGALY
     Dosage: 120 MG
     Route: 058
     Dates: start: 20160310
  5. SIMVASTATIN. [Concomitant]
     Active Substance: SIMVASTATIN
  6. AMLODIPINE [Concomitant]
     Active Substance: AMLODIPINE BESYLATE
  7. SOMAVERT [Concomitant]
     Active Substance: PEGVISOMANT
  8. ASPIRIN. [Concomitant]
     Active Substance: ASPIRIN
  9. GABAPENTIN. [Concomitant]
     Active Substance: GABAPENTIN

REACTIONS (2)
  - Needle issue [Unknown]
  - Product container issue [Unknown]
